FAERS Safety Report 4649956-2 (Version None)
Quarter: 2005Q2

REPORT INFORMATION
  Report Type: 
  Country: None (occurrence: None)
  Receive Date: 20050428
  Receipt Date: 20050420
  Transmission Date: 20051028
  Serious: Yes (Other)
  Sender: FDA-Public Use
  Company Number: 2005-04-1506

PATIENT
  Sex: Female

DRUGS (2)
  1. DISOFROL TABLETS [Suspect]
     Indication: NASOPHARYNGITIS
     Dosage: 2 TABLETS ORAL
     Route: 048
     Dates: start: 20050418, end: 20050419
  2. OMEPRAZOLE [Concomitant]

REACTIONS (3)
  - BLOOD PRESSURE INCREASED [None]
  - CONFUSIONAL STATE [None]
  - MYDRIASIS [None]
